FAERS Safety Report 15565873 (Version 1)
Quarter: 2018Q4

REPORT INFORMATION
  Report Type: Spontaneous
  Country: US (occurrence: US)
  Receive Date: 20181025
  Receipt Date: 20181025
  Transmission Date: 20190205
  Serious: Yes (Other)
  Sender: FDA-Public Use
  Company Number: None

PATIENT
  Age: 73 Year
  Sex: Female
  Weight: 73.48 kg

DRUGS (2)
  1. VITAMIN D [Concomitant]
     Active Substance: CHOLECALCIFEROL
  2. HYDROCHLOROTHIAZIDE 12.5MG TB [Suspect]
     Active Substance: HYDROCHLOROTHIAZIDE
     Indication: BLOOD PRESSURE MEASUREMENT
     Dosage: ?          QUANTITY:1 DF DOSAGE FORM;?
     Route: 048
     Dates: start: 20180215, end: 20180904

REACTIONS (15)
  - Oropharyngeal pain [None]
  - Arthropathy [None]
  - Joint swelling [None]
  - Joint range of motion decreased [None]
  - Dysuria [None]
  - Recalled product [None]
  - Vision blurred [None]
  - Ear pruritus [None]
  - Chills [None]
  - Chromaturia [None]
  - Breast pain [None]
  - Weight increased [None]
  - Dysphonia [None]
  - Pruritus [None]
  - Pain in extremity [None]

NARRATIVE: CASE EVENT DATE: 20180301
